FAERS Safety Report 14979223 (Version 1)
Quarter: 2018Q2

REPORT INFORMATION
  Report Type: Spontaneous
  Country: US (occurrence: US)
  Receive Date: 20180606
  Receipt Date: 20180606
  Transmission Date: 20180711
  Serious: No
  Sender: FDA-Public Use
  Company Number: US-BAUSCH-BL-2017-023950

PATIENT
  Age: 81 Year
  Sex: Female

DRUGS (1)
  1. LOTEPREDNOL ETABONATE OPHTHALMIC OINTMENT 0.5% [Suspect]
     Active Substance: LOTEPREDNOL ETABONATE
     Indication: EYE DISORDER
     Dosage: AT BEDTIME
     Route: 047
     Dates: start: 20170511, end: 20170522

REACTIONS (1)
  - Depression [Unknown]

NARRATIVE: CASE EVENT DATE: 201705
